FAERS Safety Report 22201313 (Version 1)
Quarter: 2023Q2

REPORT INFORMATION
  Report Type: Spontaneous
  Country: US (occurrence: None)
  Receive Date: 20230411
  Receipt Date: 20230411
  Transmission Date: 20230721
  Serious: Yes (Death, Hospitalization)
  Sender: FDA-Public Use
  Company Number: None

PATIENT
  Age: 79 Year
  Sex: Female

DRUGS (1)
  1. AMIODARONE [Suspect]
     Active Substance: AMIODARONE
     Indication: Atrial fibrillation
     Dates: start: 20221021, end: 20221210

REACTIONS (3)
  - Pneumonitis [None]
  - Toxicity to various agents [None]
  - Pulmonary toxicity [None]

NARRATIVE: CASE EVENT DATE: 20221205
